FAERS Safety Report 7955221-8 (Version None)
Quarter: 2011Q4

REPORT INFORMATION
  Report Type: 
  Country: None (occurrence: None)
  Receive Date: 20111202
  Receipt Date: 20111125
  Transmission Date: 20120403
  Serious: Yes (Other)
  Sender: FDA-Public Use
  Company Number: IT-UCBSA-046570

PATIENT
  Age: 92 Year
  Sex: Male

DRUGS (3)
  1. LACOSAMIDE [Suspect]
     Indication: TEMPORAL LOBE EPILEPSY
     Dosage: DAILY DOSE:400 MG
     Route: 048
     Dates: start: 20110908, end: 20110922
  2. LACOSAMIDE [Suspect]
     Dosage: DAILY DOSE:350 MG
     Route: 048
     Dates: start: 20110923
  3. CARBAMAZEPINE [Concomitant]

REACTIONS (3)
  - ASTHENIA [None]
  - DIPLOPIA [None]
  - SINUS BRADYCARDIA [None]
